FAERS Safety Report 24012901 (Version 1)
Quarter: 2024Q2

REPORT INFORMATION
  Report Type: Spontaneous
  Country: US (occurrence: US)
  Receive Date: 20240626
  Receipt Date: 20240626
  Transmission Date: 20240716
  Serious: No
  Sender: FDA-Public Use
  Company Number: US-LEO Pharma-371494

PATIENT
  Age: 83 Year
  Sex: Female

DRUGS (2)
  1. ADBRY [Suspect]
     Active Substance: TRALOKINUMAB-LDRM
     Indication: Dermatitis atopic
     Route: 058
     Dates: start: 202206
  2. XDEMVY [Concomitant]
     Active Substance: LOTILANER
     Indication: Product used for unknown indication
     Dosage: OPHTHALMIC DROPS

REACTIONS (1)
  - Dry eye [Unknown]
